FAERS Safety Report 16304962 (Version 1)
Quarter: 2019Q2

REPORT INFORMATION
  Report Type: Spontaneous
  Country: PT (occurrence: PT)
  Receive Date: 20190513
  Receipt Date: 20190513
  Transmission Date: 20190711
  Serious: Yes (Hospitalization, Other)
  Sender: FDA-Public Use
  Company Number: PT-MYLANLABS-2019M1012677

PATIENT
  Age: 74 Year
  Sex: Female

DRUGS (2)
  1. RIVAROXABAN [Suspect]
     Active Substance: RIVAROXABAN
     Indication: PULMONARY EMBOLISM
     Dosage: 280 MILLIGRAM (20 MG X 14 TABLETS)
     Route: 048
  2. CARVEDILOL. [Suspect]
     Active Substance: CARVEDILOL
     Indication: CARDIAC FAILURE
     Dosage: 350 MILLIGRAM (25MG X 14 TABLETS)
     Route: 048

REACTIONS (4)
  - Intentional product misuse [Unknown]
  - Intentional overdose [Unknown]
  - Hypotension [Recovered/Resolved]
  - Drug abuse [Unknown]
